FAERS Safety Report 16087508 (Version 1)
Quarter: 2019Q1

REPORT INFORMATION
  Report Type: Spontaneous
  Country: CY (occurrence: CY)
  Receive Date: 20190319
  Receipt Date: 20190319
  Transmission Date: 20190418
  Serious: No
  Sender: FDA-Public Use
  Company Number: CY-ALKEM LABORATORIES LIMITED-CY-ALKEM-2019-00580

PATIENT
  Age: 73 Year
  Sex: Female

DRUGS (1)
  1. CAPECITABINE. [Suspect]
     Active Substance: CAPECITABINE
     Indication: CHEMOTHERAPY
     Dosage: 2500 MG/M2, QD, IN TWO DIVIDED DOSES GIVEN ORALLY ON DAYS 1?14 EVERY 3 WEEKS
     Route: 048

REACTIONS (1)
  - Hypertriglyceridaemia [Unknown]
